FAERS Safety Report 6669054-6 (Version None)
Quarter: 2010Q2

REPORT INFORMATION
  Report Type: 
  Country: None (occurrence: None)
  Receive Date: 20100406
  Receipt Date: 20100330
  Transmission Date: 20101027
  Serious: Yes (Hospitalization, Other)
  Sender: FDA-Public Use
  Company Number: US-SANOFI-AVENTIS-2010SA001354

PATIENT
  Age: 46 Year
  Sex: Male
  Weight: 81.64 kg

DRUGS (18)
  1. PLAVIX [Suspect]
     Indication: CORONARY ARTERY DISEASE
     Route: 048
     Dates: start: 19980101, end: 20091101
  2. PLAVIX [Suspect]
     Route: 048
  3. ASPIRIN [Concomitant]
     Route: 065
  4. PRILOSEC [Concomitant]
     Route: 065
  5. OXYCODONE HCL [Concomitant]
     Route: 065
  6. LORTAB [Concomitant]
     Indication: BREAKTHROUGH PAIN
     Dosage: 7.5/500 2 TIMES
     Route: 065
  7. PLATELET AGGREGATION INHIBITORS [Concomitant]
     Route: 065
  8. CRESTOR [Concomitant]
     Route: 065
  9. DILTIAZEM/HYDROCHLOROTHIAZIDE [Concomitant]
     Route: 065
     Dates: start: 19980301
  10. FOLIC ACID [Concomitant]
     Route: 065
  11. LISINOPRIL [Concomitant]
     Indication: BLOOD PRESSURE
     Route: 065
  12. IMDUR [Concomitant]
     Route: 065
  13. METOPROLOL TARTRATE [Concomitant]
     Indication: BLOOD PRESSURE
     Route: 065
     Dates: start: 19980301
  14. METOPROLOL TARTRATE [Concomitant]
     Indication: HEART RATE
     Route: 065
     Dates: start: 19980301
  15. DOXAZOSIN MESYLATE [Concomitant]
     Route: 065
  16. VALIUM [Concomitant]
     Dosage: 3 TIMES AS NECESSARY
     Route: 065
  17. NITROGLYCERIN [Concomitant]
     Route: 060
  18. TYLENOL-500 [Concomitant]
     Route: 065

REACTIONS (11)
  - AMYLOIDOSIS [None]
  - BLOOD URINE PRESENT [None]
  - CHEST DISCOMFORT [None]
  - CHEST PAIN [None]
  - COLITIS ISCHAEMIC [None]
  - DRUG INEFFECTIVE [None]
  - DYSURIA [None]
  - HOT FLUSH [None]
  - INTERVERTEBRAL DISC PROTRUSION [None]
  - MYOCARDIAL INFARCTION [None]
  - PAIN [None]
